FAERS Safety Report 7904104-8 (Version None)
Quarter: 2011Q4

REPORT INFORMATION
  Report Type: 
  Country: None (occurrence: None)
  Receive Date: 20111109
  Receipt Date: 20111102
  Transmission Date: 20120403
  Serious: Yes (Hospitalization, Other)
  Sender: FDA-Public Use
  Company Number: AU-B.I. PHARMACEUTICALS,INC./RIDGEFIELD-2011-AU-00416AU

PATIENT
  Sex: Female
  Weight: 87 kg

DRUGS (6)
  1. ATENOLOL [Concomitant]
     Dosage: 25 MG
     Dates: start: 20110709
  2. GABAPENTIN [Concomitant]
     Dosage: 300 MG
     Dates: start: 20110701
  3. EZETIMIBE [Concomitant]
     Dosage: 10 MG
     Dates: start: 20050101
  4. PRADAXA [Suspect]
     Indication: ATRIAL FIBRILLATION
     Dosage: 220 MG
     Route: 048
     Dates: start: 20110701
  5. LEVOTHYROXINE SODIUM [Concomitant]
     Dosage: 75 MCG
     Dates: start: 20050101
  6. VERAPAMIL [Concomitant]
     Dosage: 240 MG
     Dates: start: 20060101

REACTIONS (2)
  - CEREBROVASCULAR ACCIDENT [None]
  - SPEECH DISORDER [None]
